FAERS Safety Report 5464031-5 (Version None)
Quarter: 2007Q3

REPORT INFORMATION
  Report Type: 
  Country: None (occurrence: None)
  Receive Date: 20070921
  Receipt Date: 20070912
  Transmission Date: 20080115
  Serious: Yes (Other)
  Sender: FDA-Public Use
  Company Number: PHHO2007US12433

PATIENT
  Age: 9 Year

DRUGS (1)
  1. DESFERAL [Suspect]
     Indication: BLOOD IRON INCREASED
     Dosage: 750 MG, QD
     Route: 048
     Dates: start: 20050815

REACTIONS (5)
  - OEDEMA PERIPHERAL [None]
  - OSTEOPOROSIS [None]
  - PAIN [None]
  - SPLINT APPLICATION [None]
  - TENOSYNOVITIS [None]
